FAERS Safety Report 21131160 (Version 2)
Quarter: 2022Q3

REPORT INFORMATION
  Report Type: Report from Study
  Country: US (occurrence: US)
  Receive Date: 20220726
  Receipt Date: 20220818
  Transmission Date: 20221027
  Serious: Yes (Hospitalization)
  Sender: FDA-Public Use
  Company Number: US-EXELIXIS-XL18422054104

PATIENT

DRUGS (2)
  1. CABOZANTINIB [Suspect]
     Active Substance: CABOZANTINIB
     Indication: Colon cancer
     Dosage: 20 MG, QD
     Route: 048
     Dates: start: 20190523, end: 20220630
  2. DURVALUMAB [Suspect]
     Active Substance: DURVALUMAB
     Indication: Colon cancer
     Dosage: 1500 MG, Q4WEEKS
     Route: 042
     Dates: start: 20190725, end: 20220210

REACTIONS (1)
  - Bile duct stenosis [Unknown]

NARRATIVE: CASE EVENT DATE: 20220714
